FAERS Safety Report 5274747-1 (Version None)
Quarter: 2007Q1

REPORT INFORMATION
  Report Type: 
  Country: None (occurrence: None)
  Receive Date: 20070320
  Receipt Date: 20070312
  Transmission Date: 20070707
  Serious: Yes (Death, Hospitalization, Other)
  Sender: FDA-Public Use
  Company Number: 163-21880-06120891

PATIENT
  Age: 71 Year
  Sex: Male

DRUGS (24)
  1. REVLIMID [Suspect]
     Indication: MYELODYSPLASTIC SYNDROME
     Dosage: 10 MG, 1 IN 1 D, ORAL
     Route: 048
     Dates: start: 20061128, end: 20061213
  2. AREDIA [Concomitant]
  3. ARANESP [Concomitant]
  4. HYDRALAZINE HCL [Concomitant]
  5. ASPIRIN [Concomitant]
  6. MOBIC [Concomitant]
  7. SENNA (SENNA) [Concomitant]
  8. PERI-COLACE (PERI-COLACE) [Concomitant]
  9. ISOSORBIDE MONONITRATE [Concomitant]
  10. VERAPAMIL SR (VERAPAMIL) [Concomitant]
  11. LASIX [Concomitant]
  12. MONOPRIL (FOSINOPRIL SODIUM) (TABLETS) [Concomitant]
  13. PREVACID [Concomitant]
  14. NOVOLOG [Concomitant]
  15. LEVEMIR (INSULIN DETEMIR) [Concomitant]
  16. COUMADIN [Concomitant]
  17. CYMBALTA [Concomitant]
  18. ZANAFLEX [Concomitant]
  19. IPRATROPRIUM BROMIDE (IPRATROPIUM BROMIDE) [Concomitant]
  20. ALBUTEROL SULFATE [Concomitant]
  21. DESFERAL [Concomitant]
  22. HYDROMORPHONE HCL [Concomitant]
  23. MECLIZINE [Concomitant]
  24. LIDODERM (LIDOCAINE) (POULTICE OR PATCH) [Concomitant]

REACTIONS (7)
  - ARTHRALGIA [None]
  - HEAD INJURY [None]
  - HYPOGLYCAEMIA [None]
  - LETHARGY [None]
  - MULTIPLE FRACTURES [None]
  - NEUROPATHY [None]
  - SYNCOPE [None]
